FAERS Safety Report 9758280 (Version 1)
Quarter: 2013Q4

REPORT INFORMATION
  Report Type: Spontaneous
  Country: US (occurrence: US)
  Receive Date: 20131216
  Receipt Date: 20131216
  Transmission Date: 20140711
  Serious: No
  Sender: FDA-Public Use
  Company Number: 2013SP004048

PATIENT
  Sex: 0

DRUGS (2)
  1. FOSPHENYTOIN SODIUM [Suspect]
     Indication: CONVULSION
  2. FOSPHENYTOIN SODIUM [Suspect]
     Indication: CONVULSION

REACTIONS (6)
  - Ataxia [Unknown]
  - Nausea [Unknown]
  - Vomiting [Unknown]
  - Lethargy [Unknown]
  - Intentional overdose [Unknown]
  - Drug administration error [Unknown]
